FAERS Safety Report 5780538-5 (Version None)
Quarter: 2008Q2

REPORT INFORMATION
  Report Type: 
  Country: None (occurrence: None)
  Receive Date: 20080620
  Receipt Date: 20080610
  Transmission Date: 20081010
  Serious: Yes (Other)
  Sender: FDA-Public Use
  Company Number: GR-SANOFI-SYNTHELABO-A01200806511

PATIENT
  Age: 72 Year
  Sex: Male

DRUGS (2)
  1. RANITIDINE HYDROCHLORIDE [Concomitant]
     Indication: ULCER
     Route: 065
  2. PLAVIX [Suspect]
     Indication: CARDIAC DISORDER
     Dosage: UNK
     Route: 048

REACTIONS (3)
  - HEADACHE [None]
  - PHOTOPSIA [None]
  - VITREOUS DETACHMENT [None]
